FAERS Safety Report 12617354 (Version 3)
Quarter: 2017Q1

REPORT INFORMATION
  Report Type: Report from Study
  Country: US (occurrence: US)
  Receive Date: 20160803
  Receipt Date: 20170207
  Transmission Date: 20170428
  Serious: Yes (Hospitalization, Disabling, Other)
  Sender: FDA-Public Use
  Company Number: US-GILEAD-2016-0226183

PATIENT
  Age: 54 Year
  Sex: Male

DRUGS (2)
  1. ADEMPAS [Concomitant]
     Active Substance: RIOCIGUAT
  2. AMBRISENTAN [Suspect]
     Active Substance: AMBRISENTAN
     Indication: PRODUCT USED FOR UNKNOWN INDICATION
     Dosage: 10 MG, QD
     Route: 065
     Dates: start: 20121207

REACTIONS (4)
  - Leg amputation [Unknown]
  - Peripheral arterial occlusive disease [Not Recovered/Not Resolved]
  - Device occlusion [Not Recovered/Not Resolved]
  - Cellulitis [Recovering/Resolving]
